FAERS Safety Report 24199451 (Version 1)
Quarter: 2024Q3

REPORT INFORMATION
  Report Type: Spontaneous
  Country: US (occurrence: US)
  Receive Date: 20240812
  Receipt Date: 20240812
  Transmission Date: 20241016
  Serious: Yes (Other)
  Sender: MACLEODS
  Company Number: US-MACLEODS PHARMA-MAC2024048713

PATIENT

DRUGS (2)
  1. TRIAMCINOLONE [Suspect]
     Active Substance: TRIAMCINOLONE
     Indication: Product used for unknown indication
     Dosage: THROUGH A SUPEROTEMPORAL APPROACH AFTER TOPICAL ANESTHESIA
     Route: 065
  2. LIDOCAINE [Concomitant]
     Active Substance: LIDOCAINE
     Indication: Anaesthesia
     Route: 065

REACTIONS (5)
  - Ocular retrobulbar haemorrhage [Unknown]
  - Retinal vascular occlusion [Unknown]
  - Choroidal neovascularisation [Unknown]
  - Visual acuity reduced [Recovering/Resolving]
  - Periorbital haemorrhage [Unknown]
